FAERS Safety Report 18798293 (Version 1)
Quarter: 2021Q1

REPORT INFORMATION
  Report Type: Report from Study
  Country: CO (occurrence: CO)
  Receive Date: 20210128
  Receipt Date: 20210128
  Transmission Date: 20210419
  Serious: Yes (Other)
  Sender: FDA-Public Use
  Company Number: CO-SA-2018SA287535

PATIENT
  Age: 46 Year
  Sex: Female

DRUGS (1)
  1. ALEMTUZUMAB [Suspect]
     Active Substance: ALEMTUZUMAB
     Indication: MULTIPLE SCLEROSIS
     Dosage: 12MG/1.2ML, QD
     Route: 041
     Dates: start: 20180223, end: 20180225

REACTIONS (9)
  - Blood thyroid stimulating hormone decreased [Recovered/Resolved]
  - Nitrite urine present [Recovered/Resolved]
  - Bacteriuria [Recovered/Resolved]
  - Monocyte count decreased [Recovered/Resolved]
  - Lymphocyte count decreased [Not Recovered/Not Resolved]
  - Leukocyturia [Recovered/Resolved]
  - Leukopenia [Unknown]
  - Red blood cells urine positive [Recovered/Resolved]
  - Blood thyroid stimulating hormone increased [Not Recovered/Not Resolved]

NARRATIVE: CASE EVENT DATE: 20181011
